FAERS Safety Report 16374032 (Version 2)
Quarter: 2019Q2

REPORT INFORMATION
  Report Type: Report from Study
  Country: US (occurrence: US)
  Receive Date: 20190530
  Receipt Date: 20190624
  Transmission Date: 20190711
  Serious: Yes (Hospitalization)
  Sender: FDA-Public Use
  Company Number: US-CELGENEUS-USA-20190500875

PATIENT
  Sex: Female

DRUGS (3)
  1. REVLIMID [Suspect]
     Active Substance: LENALIDOMIDE
     Dosage: 15 MILLIGRAM
     Route: 048
     Dates: start: 201811
  2. REVLIMID [Suspect]
     Active Substance: LENALIDOMIDE
     Dosage: 25MG - 15MG
     Route: 048
     Dates: start: 201710
  3. REVLIMID [Suspect]
     Active Substance: LENALIDOMIDE
     Indication: PLASMA CELL MYELOMA
     Dosage: 25 MILLIGRAM
     Route: 048
     Dates: start: 20160926

REACTIONS (15)
  - Anxiety [Unknown]
  - Paraesthesia [Unknown]
  - Unevaluable event [Unknown]
  - Productive cough [Unknown]
  - Gastric disorder [Unknown]
  - Diarrhoea [Unknown]
  - Asthma [Unknown]
  - Blood electrolytes decreased [Unknown]
  - Influenza [Unknown]
  - Therapy non-responder [Unknown]
  - Red blood cell count decreased [Unknown]
  - Dehydration [Unknown]
  - Bronchitis [Unknown]
  - Muscle spasms [Unknown]
  - Disorientation [Unknown]
